FAERS Safety Report 14338954 (Version 1)
Quarter: 2017Q4

REPORT INFORMATION
  Report Type: Report from Study
  Country: CA (occurrence: CA)
  Receive Date: 20171230
  Receipt Date: 20171230
  Transmission Date: 20180321
  Serious: Yes (Other)
  Sender: FDA-Public Use
  Company Number: CA-HLSUS-2017-CA-000110

PATIENT
  Age: 58 Year
  Sex: Female

DRUGS (4)
  1. CLOZARIL [Suspect]
     Active Substance: CLOZAPINE
     Dosage: 400MG DAILY BED TIME
     Route: 048
     Dates: start: 19970708, end: 20171222
  2. PANTOPRAZOLE [Concomitant]
     Active Substance: PANTOPRAZOLE
  3. LOXAPINE. [Concomitant]
     Active Substance: LOXAPINE
     Dosage: 20MG DAILY BED TIME
  4. FERROUS GLUCONATE [Concomitant]
     Active Substance: FERROUS GLUCONATE

REACTIONS (8)
  - Diabetes mellitus [Unknown]
  - Hypertension [Unknown]
  - Neutropenia [Not Recovered/Not Resolved]
  - White blood cell count decreased [Not Recovered/Not Resolved]
  - Dyslipidaemia [Unknown]
  - Pancytopenia [Unknown]
  - Rectal cancer [Unknown]
  - Hepatitis C [Unknown]

NARRATIVE: CASE EVENT DATE: 20171222
